FAERS Safety Report 7676984-5 (Version None)
Quarter: 2011Q3

REPORT INFORMATION
  Report Type: 
  Country: None (occurrence: None)
  Receive Date: 20110811
  Receipt Date: 20110802
  Transmission Date: 20111222
  Serious: Yes (Hospitalization)
  Sender: FDA-Public Use
  Company Number: FR-ROCHE-487209

PATIENT
  Sex: Male
  Weight: 76 kg

DRUGS (14)
  1. CLONAZEPAM [Suspect]
     Indication: DEPRESSION
     Dosage: REPORTED AS RIVOTRIL.
     Route: 065
     Dates: start: 20061212
  2. EMTRICITABINE/TENOFOVIR (NONROC/NONCOMP) [Suspect]
     Dosage: REPORTED AS TRUVADA.
     Route: 065
     Dates: start: 20061220
  3. FOLINORAL [Concomitant]
     Dosage: DRUG REPORTED AS FOLINORAL 25.
     Dates: start: 20060928
  4. PRAVASTATIN [Concomitant]
     Dosage: DRUG NAME REPORTED AS: ELISOR 20.
     Dates: start: 20070903
  5. DEPAKENE [Concomitant]
     Dates: start: 20070223
  6. ADIAZINE [Concomitant]
     Dosage: DRUG REPROTED AS ADIAZINE 500.
     Dates: start: 20061118
  7. IRBESARTAN [Concomitant]
     Dosage: DRUG REPORTED AS: APROVEL 150.
  8. KALETRA [Suspect]
     Route: 065
     Dates: start: 20061220
  9. KERLONE [Concomitant]
     Dosage: DRUG REPORTED AS: KERLONE 20.
  10. GLUCOPHAGE [Concomitant]
     Dosage: DRUG REPORTED AS: GLUCOPHAGE 850.
  11. ASPIRIN [Concomitant]
     Dosage: DRUG NAME REPORTED AS: KARDEGIC 300.
     Dates: start: 20070901
  12. COMBIVIR [Suspect]
     Route: 065
     Dates: start: 20080107
  13. PYRIMETHAMINE TAB [Concomitant]
     Dosage: DRUG REPORTED AS MALOCIDE 50.
     Dates: start: 20061118
  14. DEPAKENE [Concomitant]
     Dates: start: 20061002

REACTIONS (2)
  - CEREBROVASCULAR ACCIDENT [None]
  - EPILEPSY [None]
